FAERS Safety Report 8055680-9 (Version None)
Quarter: 2012Q1

REPORT INFORMATION
  Report Type: 
  Country: None (occurrence: None)
  Receive Date: 20120119
  Receipt Date: 20120109
  Transmission Date: 20120608
  Serious: Yes (Other)
  Sender: FDA-Public Use
  Company Number: CA-ELI_LILLY_AND_COMPANY-CA201201003131

PATIENT
  Age: 64 Year
  Sex: Female

DRUGS (21)
  1. D-TABS [Concomitant]
  2. ASPIRIN [Concomitant]
  3. DOMPERIDONE [Concomitant]
  4. NEXIUM [Concomitant]
  5. FENTANYL [Concomitant]
  6. DOCUSATE SODIUM [Concomitant]
  7. POTASSIUM CHLORIDE [Concomitant]
  8. VOLTAREN [Concomitant]
  9. SENOKOT [Concomitant]
  10. MULTI-VITAMINS [Concomitant]
  11. POTASSIUM CHLORIDE [Concomitant]
  12. FORTEO [Suspect]
     Indication: OSTEOPOROSIS
     Dosage: 20 UG, QD
     Route: 058
     Dates: start: 20110907
  13. FERROUS SULFATE TAB [Concomitant]
  14. CLONAZEPAM [Concomitant]
  15. VITAMIN A [Concomitant]
  16. MIRTAZAPINE [Concomitant]
  17. CALCIUM [Concomitant]
  18. CELEXA [Concomitant]
  19. SIMVASTATIN [Concomitant]
  20. ATIVAN [Concomitant]
  21. FUROSEMIDE [Concomitant]

REACTIONS (2)
  - BONE DISORDER [None]
  - ARTHRODESIS [None]
